FAERS Safety Report 4581408-0 (Version None)
Quarter: 2005Q1

REPORT INFORMATION
  Report Type: 
  Country: None (occurrence: None)
  Receive Date: 20050214
  Receipt Date: 20041015
  Transmission Date: 20050727
  Serious: No
  Sender: FDA-Public Use
  Company Number: US-GLAXOSMITHKLINE-A0530051A

PATIENT
  Age: 61 Year
  Sex: Female

DRUGS (11)
  1. LAMICTAL [Suspect]
     Indication: BIPOLAR DISORDER
     Dosage: 25MG PER DAY
     Route: 048
     Dates: start: 20040915
  2. TOPAMAX [Concomitant]
  3. TOPROL-XL [Concomitant]
  4. PREMPRO [Concomitant]
  5. AMBIEN [Concomitant]
  6. CLONAZEPAM [Concomitant]
  7. ACIPHEX [Concomitant]
  8. ZELNORM [Concomitant]
  9. ALTACE [Concomitant]
  10. EFFEXOR [Concomitant]
  11. CLARINEX [Concomitant]

REACTIONS (4)
  - BLOOD PRESSURE DECREASED [None]
  - DRUG INEFFECTIVE [None]
  - FATIGUE [None]
  - VISION BLURRED [None]
